FAERS Safety Report 9231935 (Version 1)
Quarter: 2013Q2

REPORT INFORMATION
  Report Type: Spontaneous
  Country: US (occurrence: US)
  Receive Date: 20130415
  Receipt Date: 20130415
  Transmission Date: 20140414
  Serious: Yes (Other)
  Sender: FDA-Public Use
  Company Number: US-PFIZER INC-US-WYE-H00895607

PATIENT
  Age: 73 Year
  Sex: Female
  Weight: 75 kg

DRUGS (11)
  1. PREMARIN [Suspect]
     Indication: HORMONE REPLACEMENT THERAPY
     Dosage: UNK
     Route: 048
     Dates: start: 1981, end: 1995
  2. PREMPRO [Suspect]
     Indication: HORMONE REPLACEMENT THERAPY
     Dosage: 0.625/5MG
     Route: 048
     Dates: start: 1995, end: 2002
  3. CYCRIN [Suspect]
     Indication: HORMONE REPLACEMENT THERAPY
     Dosage: UNK
     Route: 048
  4. DOXEPIN [Concomitant]
     Indication: INSOMNIA
     Dosage: UNK
  5. LIPITOR [Concomitant]
     Indication: HYPERLIPIDAEMIA
     Dosage: 10 MG, UNK
  6. XANAX [Concomitant]
     Indication: ANXIETY
     Dosage: UNK
     Dates: start: 1993
  7. LOPID [Concomitant]
     Indication: HYPERLIPIDAEMIA
     Dosage: 600 MG, UNK
     Dates: start: 200005
  8. GEMFIBROZIL [Concomitant]
     Indication: HYPERLIPIDAEMIA
     Dosage: 600 MG, UNK
     Dates: start: 200005
  9. PAXIL [Concomitant]
     Indication: ANXIETY
     Dosage: UNK
     Dates: start: 200008
  10. PRILOSEC [Concomitant]
     Indication: GASTROOESOPHAGEAL REFLUX DISEASE
     Dosage: UNK
     Dates: start: 200102
  11. EDECRIN [Concomitant]
     Indication: HYPERTENSION
     Dosage: 50 MG, UNK
     Dates: start: 200311

REACTIONS (2)
  - Breast cancer female [Recovering/Resolving]
  - Anxiety [Unknown]
